FAERS Safety Report 7091092-2 (Version None)
Quarter: 2010Q4

REPORT INFORMATION
  Report Type: 
  Country: None (occurrence: None)
  Receive Date: 20101109
  Receipt Date: 20101105
  Transmission Date: 20110411
  Serious: Yes (Death)
  Sender: FDA-Public Use
  Company Number: PHHO2010SE16858

PATIENT
  Sex: Female
  Weight: 70.2 kg

DRUGS (1)
  1. TASIGNA [Suspect]
     Indication: GASTROINTESTINAL STROMAL TUMOUR
     Dosage: 410 MG, BID
     Route: 048
     Dates: start: 20101012

REACTIONS (5)
  - ABDOMINAL PAIN [None]
  - INFECTION [None]
  - MALIGNANT NEOPLASM PROGRESSION [None]
  - SEPTIC SHOCK [None]
  - TUMOUR NECROSIS [None]
